FAERS Safety Report 8117847-0 (Version None)
Quarter: 2012Q1

REPORT INFORMATION
  Report Type: 
  Country: None (occurrence: None)
  Receive Date: 20120207
  Receipt Date: 20120129
  Transmission Date: 20120608
  Serious: Yes (Other)
  Sender: FDA-Public Use
  Company Number: CH-US-EMD SERONO, INC.-7107244

PATIENT
  Sex: Female

DRUGS (1)
  1. REBIF [Suspect]
     Indication: RELAPSING-REMITTING MULTIPLE SCLEROSIS
     Route: 058
     Dates: start: 20061201

REACTIONS (5)
  - RHEUMATOID ARTHRITIS [None]
  - ARTHRITIS [None]
  - ARTHRITIS BACTERIAL [None]
  - COLLAGEN DISORDER [None]
  - ARTHRITIS REACTIVE [None]
